FAERS Safety Report 18232556 (Version 3)
Quarter: 2020Q3

REPORT INFORMATION
  Report Type: Spontaneous
  Country: US (occurrence: US)
  Receive Date: 20200904
  Receipt Date: 20200925
  Transmission Date: 20201103
  Serious: No
  Sender: FDA-Public Use
  Company Number: US-PFIZER INC-2020342779

PATIENT
  Age: 55 Year
  Sex: Male

DRUGS (1)
  1. CYTOTEC [Suspect]
     Active Substance: MISOPROSTOL
     Dosage: UNK

REACTIONS (4)
  - Fall [Unknown]
  - Limb injury [Unknown]
  - Constipation [Not Recovered/Not Resolved]
  - Product prescribing error [Unknown]
